FAERS Safety Report 16042401 (Version 1)
Quarter: 2019Q1

REPORT INFORMATION
  Report Type: Spontaneous
  Country: US (occurrence: US)
  Receive Date: 20190306
  Receipt Date: 20190306
  Transmission Date: 20190418
  Serious: No
  Sender: FDA-Public Use
  Company Number: US-PFIZER INC-2019087186

PATIENT
  Age: 12 Year
  Sex: Female
  Weight: 34.46 kg

DRUGS (1)
  1. GENOTROPIN [Suspect]
     Active Substance: SOMATROPIN
     Indication: BLOOD GROWTH HORMONE
     Dosage: 1.0 MG, 1X/DAY [ONE OF HER LEGS ONCE A DAY ]

REACTIONS (1)
  - Product dose omission [Not Recovered/Not Resolved]
